FAERS Safety Report 6055056-X (Version None)
Quarter: 2009Q1

REPORT INFORMATION
  Report Type: 
  Country: None (occurrence: None)
  Receive Date: 20090122
  Receipt Date: 20090112
  Transmission Date: 20090719
  Serious: Yes (Death, Hospitalization, Other)
  Sender: FDA-Public Use
  Company Number: CLOF-1000289

PATIENT
  Age: 66 Year
  Sex: Male
  Weight: 85 kg

DRUGS (1)
  1. EVOLTRA (CLOFARABINE) SOLUTION FOR INFUSION [Suspect]
     Indication: ACUTE LEUKAEMIA
     Dosage: 20 MG/KG, INTRAVENOUS
     Route: 042
     Dates: start: 20080915

REACTIONS (4)
  - AGITATION [None]
  - BLOOD CREATININE INCREASED [None]
  - NONSPECIFIC REACTION [None]
  - PULMONARY OEDEMA [None]
